FAERS Safety Report 17619119 (Version 1)
Quarter: 2020Q2

REPORT INFORMATION
  Report Type: Spontaneous
  Country: US (occurrence: US)
  Receive Date: 20200402
  Receipt Date: 20200402
  Transmission Date: 20200713
  Serious: No
  Sender: FDA-Public Use
  Company Number: US-009507513-2004USA000652

PATIENT
  Age: 50 Year
  Sex: Female

DRUGS (3)
  1. ASMANEX [Suspect]
     Active Substance: MOMETASONE FUROATE
     Dosage: TWO PUFF PER DAY
     Route: 055
     Dates: start: 20200331
  2. PROAIR HFA [Concomitant]
     Active Substance: ALBUTEROL SULFATE
  3. ASMANEX [Suspect]
     Active Substance: MOMETASONE FUROATE
     Indication: ASTHMA
     Dosage: 1 PUFF PER DAY
     Route: 055
     Dates: start: 2010, end: 202003

REACTIONS (6)
  - Product quality issue [Unknown]
  - Stress [Not Recovered/Not Resolved]
  - Poor quality device used [Unknown]
  - Intentional product misuse [Unknown]
  - Chest discomfort [Not Recovered/Not Resolved]
  - Product dose omission [Unknown]

NARRATIVE: CASE EVENT DATE: 202003
